FAERS Safety Report 10232769 (Version 1)
Quarter: 2014Q2

REPORT INFORMATION
  Report Type: Spontaneous
  Country: US (occurrence: None)
  Receive Date: 20140611
  Receipt Date: 20140611
  Transmission Date: 20141212
  Serious: Yes (Life-Threatening, Hospitalization, Other)
  Sender: FDA-Public Use
  Company Number: None

PATIENT
  Age: 30 Year
  Sex: Female
  Weight: 70.31 kg

DRUGS (5)
  1. CHANTIX [Suspect]
     Indication: SMOKING CESSATION THERAPY
     Dosage: 1 MG?1 PILL 2X PER DAY?2X A DAY?ORAL??THERAPY ?FEBRUARY?MAY?
     Route: 048
  2. NIIVAN [Concomitant]
  3. BENTYL [Concomitant]
  4. PROPRONOLOL [Concomitant]
  5. COCONUT OIL [Concomitant]

REACTIONS (2)
  - Suicide attempt [None]
  - Cardiac arrest [None]
